FAERS Safety Report 24200828 (Version 2)
Quarter: 2024Q4

REPORT INFORMATION
  Report Type: Spontaneous
  Country: US (occurrence: US)
  Receive Date: 20240812
  Receipt Date: 20241014
  Transmission Date: 20250115
  Serious: Yes (Other)
  Sender: NOVARTIS
  Company Number: US-002147023-NVSC2024US160589

PATIENT
  Sex: Female

DRUGS (1)
  1. KESIMPTA [Suspect]
     Active Substance: OFATUMUMAB
     Indication: Product used for unknown indication
     Dosage: UNK
     Route: 065

REACTIONS (6)
  - Pericarditis [Unknown]
  - Multiple sclerosis [Unknown]
  - Hypersensitivity [Unknown]
  - Pharyngeal swelling [Unknown]
  - Dysphagia [Unknown]
  - Cardiac disorder [Unknown]
